FAERS Safety Report 9768801 (Version 2)
Quarter: 2014Q1

REPORT INFORMATION
  Report Type: Spontaneous
  Country: US (occurrence: US)
  Receive Date: 20131218
  Receipt Date: 20140130
  Transmission Date: 20141002
  Serious: Yes (Hospitalization)
  Sender: FDA-Public Use
  Company Number: US-BIOGENIDEC-2013BI121024

PATIENT
  Age: 63 Year
  Sex: Male

DRUGS (17)
  1. TYSABRI [Suspect]
     Indication: MULTIPLE SCLEROSIS
     Route: 042
     Dates: start: 201205
  2. AMPYRA [Concomitant]
  3. AMANTADINE [Concomitant]
  4. AMBIEN [Concomitant]
  5. NUVIGIL [Concomitant]
  6. ASPIRIN [Concomitant]
  7. BACLOFEN [Concomitant]
  8. CALCIUM WITH VITAMIN D [Concomitant]
  9. COLACE [Concomitant]
  10. DETROL [Concomitant]
  11. FERROUS SULFATE [Concomitant]
  12. GALANTAMINE [Concomitant]
  13. LISINOPRIL [Concomitant]
  14. MIRALAX [Concomitant]
  15. PROZAC [Concomitant]
  16. VALIUM [Concomitant]
  17. VITAMIN B [Concomitant]

REACTIONS (3)
  - Asthenia [Unknown]
  - Fall [Recovered/Resolved]
  - Urinary tract infection [Recovered/Resolved]
